FAERS Safety Report 18740741 (Version 1)
Quarter: 2021Q1

REPORT INFORMATION
  Report Type: Spontaneous
  Country: CH (occurrence: FR)
  Receive Date: 20210114
  Receipt Date: 20210114
  Transmission Date: 20210419
  Serious: Yes (Other)
  Sender: FDA-Public Use
  Company Number: CH-AMGEN-FRASP2021001250

PATIENT
  Age: 54 Year
  Sex: Female

DRUGS (9)
  1. PLERIXAFOR [Concomitant]
     Active Substance: PLERIXAFOR
     Dosage: 16 MILLIGRAM, THREE SC INJECTIONS
     Route: 058
  2. VELCADE [Concomitant]
     Active Substance: BORTEZOMIB
     Indication: PLASMA CELL MYELOMA
     Dosage: 1.3 MILLIGRAM/SQ. METER, QWK (CYCLE REPEATED EVERY 21 DAYS)
     Route: 042
     Dates: start: 2009
  3. VELCADE [Concomitant]
     Active Substance: BORTEZOMIB
     Indication: BONE CANCER
  4. DEXAMETHASONE. [Concomitant]
     Active Substance: DEXAMETHASONE
     Indication: PLASMA CELL MYELOMA
     Dosage: 40 MILLIGRAM, Q2WK (CYCLE REPEATED EVERY 21 DAYS)
     Route: 048
     Dates: start: 2009
  5. DEXAMETHASONE. [Concomitant]
     Active Substance: DEXAMETHASONE
     Indication: BONE CANCER
  6. FILGRASTIM [Suspect]
     Active Substance: FILGRASTIM
     Indication: HAEMATOPOIETIC STEM CELL MOBILISATION
     Dosage: 10 MICROGRAM/KILOGRAM, 7DAYS
     Route: 058
     Dates: start: 2009
  7. FILGRASTIM [Suspect]
     Active Substance: FILGRASTIM
     Dosage: 10 MICROGRAM/KILOGRAM, QD (7DAYS)
     Route: 058
  8. VELCADE [Concomitant]
     Active Substance: BORTEZOMIB
     Indication: PLASMA CELL MYELOMA RECURRENT
  9. DEXAMETHASONE. [Concomitant]
     Active Substance: DEXAMETHASONE
     Indication: PLASMA CELL MYELOMA RECURRENT

REACTIONS (7)
  - Hepatitis [Unknown]
  - Vanishing bile duct syndrome [Unknown]
  - Bone marrow failure [Recovering/Resolving]
  - Plasma cell myeloma recurrent [Unknown]
  - Pancytopenia [Recovering/Resolving]
  - Haemophagocytic lymphohistiocytosis [Recovered/Resolved]
  - Epstein-Barr virus infection reactivation [Unknown]

NARRATIVE: CASE EVENT DATE: 201511
